FAERS Safety Report 5841662-1 (Version None)
Quarter: 2008Q3

REPORT INFORMATION
  Report Type: 
  Country: None (occurrence: None)
  Receive Date: 20080731
  Receipt Date: 20080605
  Transmission Date: 20090109
  Serious: No
  Sender: FDA-Public Use
  Company Number: US200806001578

PATIENT
  Age: 67 Year
  Sex: Female
  Weight: 105.2 kg

DRUGS (5)
  1. BYETTA [Suspect]
     Indication: INSULIN-REQUIRING TYPE 2 DIABETES MELLITUS
     Dosage: 5 UG, 2/D, SUBCUTANEOUS; 5 UG, EACH EVENING, SUBCUTANEOUS
     Route: 058
     Dates: start: 20070101, end: 20070101
  2. BYETTA [Suspect]
     Indication: INSULIN-REQUIRING TYPE 2 DIABETES MELLITUS
     Dosage: 5 UG, 2/D, SUBCUTANEOUS; 5 UG, EACH EVENING, SUBCUTANEOUS
     Route: 058
     Dates: start: 20080604
  3. . [Concomitant]
  4. . [Concomitant]
  5. DRUG USED IN DIABETES [Concomitant]

REACTIONS (1)
  - WEIGHT INCREASED [None]
